FAERS Safety Report 5034673-X (Version None)
Quarter: 2006Q2

REPORT INFORMATION
  Report Type: 
  Country: None (occurrence: None)
  Receive Date: 20060621
  Receipt Date: 20060607
  Transmission Date: 20061013
  Serious: Yes (Other)
  Sender: FDA-Public Use
  Company Number: 2006-112

PATIENT
  Sex: Female

DRUGS (5)
  1. CITALOPRAM [Suspect]
     Indication: DEPRESSION
     Dosage: 20MG DAILY ORALLY
     Route: 048
     Dates: start: 20060508, end: 20060510
  2. BENDROFLUMETHIAZIDE [Suspect]
     Indication: HYPERTENSION
     Dosage: 2.5MG DAILY ORALLY
     Route: 048
     Dates: start: 20060424, end: 20060508
  3. CO-DYDRAMOL [Concomitant]
  4. THYROXINE [Concomitant]
  5. ZOPICLONE [Concomitant]

REACTIONS (4)
  - HYPOKALAEMIA [None]
  - HYPONATRAEMIA [None]
  - NAUSEA [None]
  - VOMITING [None]
